FAERS Safety Report 10626634 (Version 1)
Quarter: 2014Q4

REPORT INFORMATION
  Report Type: Report from Study
  Country: IL (occurrence: IL)
  Receive Date: 20141204
  Receipt Date: 20141204
  Transmission Date: 20150529
  Serious: Yes (Hospitalization)
  Sender: FDA-Public Use
  Company Number: IL-BAYER-2014-176756

PATIENT
  Age: 34 Year
  Sex: Female

DRUGS (6)
  1. OMEPRAZOLE. [Suspect]
     Active Substance: OMEPRAZOLE
  2. ACETYLSALICYLIC ACID({=100 MG) [Interacting]
     Active Substance: ASPIRIN
  3. PREDNISONE. [Concomitant]
     Active Substance: PREDNISONE
  4. PROPAFENONE. [Concomitant]
     Active Substance: PROPAFENONE
  5. METHOTREXATE [Interacting]
     Active Substance: METHOTREXATE
     Indication: SCLERODERMA
     Dosage: 10 MG, OW
  6. LISINOPRIL. [Concomitant]
     Active Substance: LISINOPRIL

REACTIONS (4)
  - Mucosal inflammation [Recovered/Resolved]
  - Labelled drug-drug interaction medication error [None]
  - Toxicity to various agents [None]
  - Pancytopenia [Recovered/Resolved]
